FAERS Safety Report 6522535-8 (Version None)
Quarter: 2009Q4

REPORT INFORMATION
  Report Type: 
  Country: None (occurrence: None)
  Receive Date: 20091229
  Receipt Date: 20091229
  Transmission Date: 20100525
  Serious: Yes (Hospitalization)
  Sender: FDA-Public Use
  Company Number: None

PATIENT
  Age: 55 Year
  Sex: Male
  Weight: 87.0906 kg

DRUGS (2)
  1. BEVACIZUMAB [Suspect]
     Indication: GLIOBLASTOMA
     Dosage: 10 MG/KG EVERY 14 DAYS IV
     Route: 042
     Dates: start: 20080813, end: 20091216
  2. TEMOZOLOMIDE [Suspect]
     Dosage: 200 MG/M2 FIVE OF 28 DAYS
     Dates: start: 20080813, end: 20091216

REACTIONS (3)
  - DRUG DOSE OMISSION [None]
  - GRAND MAL CONVULSION [None]
  - MUSCULAR WEAKNESS [None]
